FAERS Safety Report 16831265 (Version 1)
Quarter: 2019Q3

REPORT INFORMATION
  Report Type: Spontaneous
  Country: US (occurrence: US)
  Receive Date: 20190920
  Receipt Date: 20190920
  Transmission Date: 20191005
  Serious: Yes (Other)
  Sender: FDA-Public Use
  Company Number: US-INSMED, INC.-US-INS-19-03061

PATIENT
  Age: 57 Year
  Sex: Female

DRUGS (4)
  1. IMIPENEM [Suspect]
     Active Substance: IMIPENEM
     Indication: MYCOBACTERIUM ABSCESSUS INFECTION
  2. TIGECYCLINE. [Suspect]
     Active Substance: TIGECYCLINE
     Indication: MYCOBACTERIUM ABSCESSUS INFECTION
  3. ARIKAYCE [Suspect]
     Active Substance: AMIKACIN
     Indication: MYCOBACTERIUM ABSCESSUS INFECTION
     Route: 055
  4. LAMIRA NEBULIZER SYSTEM [Suspect]
     Active Substance: DEVICE

REACTIONS (3)
  - Off label use [Unknown]
  - Nephropathy toxic [Unknown]
  - Renal failure [Unknown]
